FAERS Safety Report 7482603-3 (Version None)
Quarter: 2011Q2

REPORT INFORMATION
  Report Type: 
  Country: None (occurrence: None)
  Receive Date: 20110516
  Receipt Date: 20110427
  Transmission Date: 20111010
  Serious: No
  Sender: FDA-Public Use
  Company Number: US-B.I. PHARMACEUTICALS,INC./RIDGEFIELD-2011-BP-05354BP

PATIENT
  Sex: Female

DRUGS (10)
  1. FLUTICASONE PROPIONATE [Concomitant]
     Indication: SINUS DISORDER
  2. PRADAXA [Suspect]
     Indication: ATRIAL FIBRILLATION
     Dosage: 300 MG
     Route: 048
     Dates: start: 20110131, end: 20110206
  3. SYNTHROID [Concomitant]
     Indication: THYROIDECTOMY
  4. PRILOSEC [Concomitant]
     Indication: DYSPEPSIA
  5. METOPROLOL SUCCINATE [Concomitant]
     Indication: HYPERTENSION
  6. METFORMIN HCL [Concomitant]
     Indication: GLUCOSE TOLERANCE IMPAIRED
  7. LISINOPRIL [Concomitant]
     Indication: HYPERTENSION
  8. LORTAB [Concomitant]
     Indication: BACK PAIN
  9. FLECAINIDE ACETATE [Concomitant]
     Indication: ATRIAL FIBRILLATION
  10. FENOFIBRATE [Concomitant]
     Indication: BLOOD CHOLESTEROL INCREASED

REACTIONS (4)
  - DYSPNOEA [None]
  - JOINT SWELLING [None]
  - ABDOMINAL PAIN [None]
  - ABDOMINAL DISCOMFORT [None]
